FAERS Safety Report 9768028 (Version 1)
Quarter: 2013Q4

REPORT INFORMATION
  Report Type: Spontaneous
  Country: US (occurrence: US)
  Receive Date: 20131217
  Receipt Date: 20131217
  Transmission Date: 20140711
  Serious: Yes (Other)
  Sender: FDA-Public Use
  Company Number: US-BAYER-2013-151789

PATIENT
  Sex: 0

DRUGS (1)
  1. ALEVE CAPLET [Suspect]

REACTIONS (2)
  - Gastric disorder [None]
  - Feeling abnormal [None]
